FAERS Safety Report 25675440 (Version 1)
Quarter: 2025Q3

REPORT INFORMATION
  Report Type: Spontaneous
  Country: CN (occurrence: CN)
  Receive Date: 20250813
  Receipt Date: 20250813
  Transmission Date: 20251021
  Serious: Yes (Hospitalization)
  Sender: ACCORD
  Company Number: None

PATIENT
  Age: 70 Year
  Sex: Male
  Weight: 47 kg

DRUGS (8)
  1. CISPLATIN [Suspect]
     Active Substance: CISPLATIN
     Indication: Gastric cancer
     Dosage: 40 MILLIGRAM, Q3W, D1-3, IV DRIP, REGIMEN 1
     Dates: start: 20250414
  2. CAPECITABINE [Suspect]
     Active Substance: CAPECITABINE
     Indication: Gastric cancer
     Dosage: 1500 MILLIGRAM, Q3W, BID, D1-D14, REGIMEN 1
     Route: 048
     Dates: start: 20250414
  3. TRASTUZUMAB [Suspect]
     Active Substance: TRASTUZUMAB
     Indication: Gastric cancer
     Dosage: 300 MILLIGRAM, Q3W, IV DRIP, STRENGTH: 150 MG
     Dates: start: 20250414
  4. CAPECITABINE [Suspect]
     Active Substance: CAPECITABINE
     Indication: Gastric cancer
     Dosage: 1000 MILLIGRAM, Q3W, BID, D1-D14, ORAL USE
     Dates: start: 20250710, end: 20250724
  5. CISPLATIN [Suspect]
     Active Substance: CISPLATIN
     Indication: Gastric cancer
     Dosage: 40 MILLIGRAM, Q3W, D1-3; IV DRIP, REGIMEN 2
     Dates: start: 20250709, end: 20250711
  6. TRASTUZUMAB [Suspect]
     Active Substance: TRASTUZUMAB
     Indication: Gastric cancer
     Dosage: 300 MILLIGRAM, Q3W, REGIMEN 2, IV DRIP, STRENGTH: 150 MG
     Dates: start: 20250709, end: 20250709
  7. TRASTUZUMAB [Suspect]
     Active Substance: TRASTUZUMAB
     Indication: Gastric cancer
     Dosage: 300 MILLIGRAM, Q3W, IV DRIP, STRENGTH: 150 MG
     Dates: start: 20250730, end: 20250730
  8. CAPECITABINE [Suspect]
     Active Substance: CAPECITABINE
     Indication: Gastric cancer
     Dosage: 1500 MILLIGRAM, Q3W, BID, D1-D14, REGIMEN 3
     Route: 048
     Dates: start: 20250730

REACTIONS (2)
  - Myelosuppression [Recovering/Resolving]
  - Palmar-plantar erythrodysaesthesia syndrome [Unknown]

NARRATIVE: CASE EVENT DATE: 20250709
